FAERS Safety Report 4485925-3 (Version None)
Quarter: 2004Q4

REPORT INFORMATION
  Report Type: 
  Country: None (occurrence: None)
  Receive Date: 20041026
  Receipt Date: 20041004
  Transmission Date: 20050328
  Serious: Yes (Disabling, Other)
  Sender: FDA-Public Use
  Company Number: 04-10-1478

PATIENT
  Age: 39 Year
  Sex: Male

DRUGS (2)
  1. FLUOXETINE USP - IPI [Suspect]
     Indication: DEPRESSION
     Dosage: 20MG DAILY ORAL
     Route: 048
     Dates: start: 20040422, end: 20040916
  2. FLUOXETINE USP - IPI [Suspect]

REACTIONS (2)
  - RESTLESS LEGS SYNDROME [None]
  - SLEEP DISORDER [None]
